FAERS Safety Report 7148645-2 (Version None)
Quarter: 2010Q4

REPORT INFORMATION
  Report Type: 
  Country: None (occurrence: None)
  Receive Date: 20101122
  Receipt Date: 20101117
  Transmission Date: 20110411
  Serious: Yes (Death, Life-Threatening, Disabling, Other)
  Sender: FDA-Public Use
  Company Number: 2007SP002821

PATIENT
  Age: 67 Year
  Sex: Male
  Weight: 72 kg

DRUGS (10)
  1. TEMODAL [Suspect]
     Indication: ANAPLASTIC ASTROCYTOMA
     Dosage: 150 MG/M2;QD;PO, 200 MG/M2;QD;PO
     Route: 048
     Dates: start: 20060923, end: 20060927
  2. TEMODAL [Suspect]
     Indication: ANAPLASTIC ASTROCYTOMA
     Dosage: 150 MG/M2;QD;PO, 200 MG/M2;QD;PO
     Route: 048
     Dates: start: 20061021, end: 20061025
  3. GASTER D [Concomitant]
  4. PREDNISOLONE [Concomitant]
  5. VOLTAREN [Concomitant]
  6. OXYCONTIN [Concomitant]
  7. OPSO [Concomitant]
  8. MOBIC [Concomitant]
  9. LAC-B (BIFIDOBACTERIUM) [Concomitant]
  10. HUMULIN R [Concomitant]

REACTIONS (5)
  - ANAPLASTIC ASTROCYTOMA [None]
  - GENERAL PHYSICAL HEALTH DETERIORATION [None]
  - LYMPHOCYTE COUNT DECREASED [None]
  - MALIGNANT NEOPLASM PROGRESSION [None]
  - PNEUMONIA ASPIRATION [None]
